FAERS Safety Report 8799182 (Version 1)
Quarter: 2012Q4

REPORT INFORMATION
  Report Type: 
  Country: US (occurrence: US)
  Receive Date: 20120920
  Receipt Date: 20120920
  Transmission Date: 20130627
  Serious: No
  Sender: FDA-Public Use
  Company Number: US-ASTRAZENECA-2012SE19529

PATIENT
  Sex: Male

DRUGS (3)
  1. ZESTRIL [Suspect]
     Indication: SYSTOLIC HYPERTENSION
     Route: 048
     Dates: start: 2010
  2. ZESTRIL [Suspect]
     Indication: SYSTOLIC HYPERTENSION
     Route: 048
  3. ZESTRIL [Suspect]
     Indication: SYSTOLIC HYPERTENSION
     Dosage: 20 MG IN THE MORNING, 20 MG IN THE EVENING
     Route: 048

REACTIONS (3)
  - Blood pressure systolic increased [Unknown]
  - Off label use [Unknown]
  - Drug ineffective [Unknown]
